FAERS Safety Report 12122480 (Version 5)
Quarter: 2016Q3

REPORT INFORMATION
  Report Type: Report from Study
  Country: CN (occurrence: CN)
  Receive Date: 20160226
  Receipt Date: 20160812
  Transmission Date: 20161109
  Serious: Yes (Hospitalization)
  Sender: FDA-Public Use
  Company Number: CN-ASTRAZENECA-2016SE17931

PATIENT
  Age: 19001 Day
  Sex: Female

DRUGS (10)
  1. PACLITAXEL. [Suspect]
     Active Substance: PACLITAXEL
     Indication: NEOPLASM
     Dosage: 80MG/M2 AS IN IV INFUSION OVER 1 HOUR
     Route: 042
     Dates: start: 20160215, end: 20160215
  2. PACLITAXEL. [Suspect]
     Active Substance: PACLITAXEL
     Indication: NEOPLASM
     Dosage: 80MG/M2 AS IN IV INFUSION OVER 1 HOUR
     Route: 042
     Dates: start: 20160308, end: 20160321
  3. AZD2281 [Suspect]
     Active Substance: OLAPARIB
     Indication: NEOPLASM
     Route: 048
     Dates: start: 20160120, end: 20160120
  4. AZD2281 [Suspect]
     Active Substance: OLAPARIB
     Indication: NEOPLASM
     Route: 048
     Dates: start: 20160401, end: 20160401
  5. PACLITAXEL. [Suspect]
     Active Substance: PACLITAXEL
     Indication: NEOPLASM
     Dosage: 80MG/M2 AS IN IV INFUSION OVER 1 HOUR
     Route: 042
     Dates: start: 20160206, end: 20160206
  6. AZD2281 [Suspect]
     Active Substance: OLAPARIB
     Indication: NEOPLASM
     Route: 048
     Dates: start: 20160216, end: 20160330
  7. PACLITAXEL. [Suspect]
     Active Substance: PACLITAXEL
     Indication: NEOPLASM
     Dosage: 80MG/M2 AS IN IV INFUSION OVER 1 HOUR
     Route: 042
     Dates: start: 20160131, end: 20160131
  8. AZD2281 [Suspect]
     Active Substance: OLAPARIB
     Indication: NEOPLASM
     Route: 048
     Dates: start: 20160123, end: 20160130
  9. AZD2281 [Suspect]
     Active Substance: OLAPARIB
     Indication: NEOPLASM
     Route: 048
     Dates: start: 20160131, end: 20160215
  10. DACHAIHU GRANULATION [Concomitant]
     Indication: CONSTIPATION
     Route: 048
     Dates: start: 20160206

REACTIONS (1)
  - Neutropenia [Recovered/Resolved]

NARRATIVE: CASE EVENT DATE: 20160206
